FAERS Safety Report 8322190-0 (Version None)
Quarter: 2012Q2

REPORT INFORMATION
  Report Type: 
  Country: None (occurrence: None)
  Receive Date: 20120430
  Receipt Date: 20110505
  Transmission Date: 20120825
  Serious: No
  Sender: FDA-Public Use
  Company Number: US-COVIDIEN/TYCO HEALTHCARE/MALLINCKRODT-T201100926

PATIENT
  Age: 76 Year
  Sex: Female

DRUGS (6)
  1. VITAMINS NOS [Concomitant]
     Dosage: UNK
  2. EFFEXOR [Concomitant]
     Dosage: UNK
  3. ASPIRIN CHILDREN [Concomitant]
     Dosage: UNK
  4. ANTIHYPERTENSIVES [Concomitant]
     Indication: HYPERTENSION
     Dosage: UNK
  5. HYDROCODONE BITARTRATE + ACETAMINOPHEN [Suspect]
     Indication: PELVIC PAIN
     Dosage: 5/500 MG, 1 TABLET QID
     Route: 048
     Dates: start: 20110420
  6. ZOCOR [Concomitant]
     Dosage: UNK

REACTIONS (1)
  - MICTURITION URGENCY [None]
